FAERS Safety Report 4596249-8 (Version None)
Quarter: 2005Q1

REPORT INFORMATION
  Report Type: 
  Country: None (occurrence: None)
  Receive Date: 20050225
  Receipt Date: 20050201
  Transmission Date: 20050727
  Serious: Yes (Death)
  Sender: FDA-Public Use
  Company Number: GBR-2005-0001490

PATIENT
  Age: 55 Year
  Sex: Female
  Weight: 49 kg

DRUGS (6)
  1. HYDROMORPHONE HCL [Suspect]
     Dosage: 8 MG, DAILY, ORAL
     Route: 048
     Dates: start: 20041216, end: 20041223
  2. MEPRONIZINE (MEPROBAMATE, ACEPROMETAZINE) [Suspect]
     Dosage: 1 UNIT, DAILY, ORAL
     Route: 048
     Dates: start: 20041213, end: 20041219
  3. AREDIA [Suspect]
     Dosage: 90 MG, INTRAVENOUS
     Route: 042
     Dates: start: 20041216
  4. EQUANIL [Suspect]
     Dosage: 250 MG, DAILY, ORAL
     Route: 048
     Dates: start: 20041214, end: 20041219
  5. LASILIX (FUROSEMIDE) [Suspect]
     Dosage: 60 MG, DAILY, INTRAVENOUS
     Route: 042
     Dates: start: 20041214, end: 20041215
  6. SOLU-MEDROL [Suspect]
     Dosage: 120 MG, TID, INTRAVENOUS
     Route: 042
     Dates: start: 20041213, end: 20041217

REACTIONS (5)
  - DRUG TOXICITY [None]
  - NEPHRITIS INTERSTITIAL [None]
  - PARANEOPLASTIC SYNDROME [None]
  - RENAL FAILURE ACUTE [None]
  - TUMOUR LYSIS SYNDROME [None]
